FAERS Safety Report 6613875-2 (Version None)
Quarter: 2010Q1

REPORT INFORMATION
  Report Type: 
  Country: None (occurrence: None)
  Receive Date: 20100304
  Receipt Date: 20100301
  Transmission Date: 20100710
  Serious: Yes (Death, Other)
  Sender: FDA-Public Use
  Company Number: A0845837A

PATIENT
  Age: 46 Year
  Sex: Male

DRUGS (1)
  1. PROMACTA [Suspect]
     Indication: IDIOPATHIC THROMBOCYTOPENIC PURPURA
     Dosage: 50MG PER DAY
     Dates: start: 20091001, end: 20091218

REACTIONS (3)
  - DISEASE PROGRESSION [None]
  - HAEMATOLOGICAL MALIGNANCY [None]
  - PANCYTOPENIA [None]
